FAERS Safety Report 17843210 (Version 1)
Quarter: 2020Q2

REPORT INFORMATION
  Report Type: Spontaneous
  Country: CA (occurrence: CA)
  Receive Date: 20200530
  Receipt Date: 20200530
  Transmission Date: 20200714
  Serious: Yes (Hospitalization, Other)
  Sender: FDA-Public Use
  Company Number: CA-B.I. PHARMACEUTICALS,INC./RIDGEFIELD-2020-BI-026487

PATIENT
  Age: 64 Year
  Sex: Male

DRUGS (8)
  1. ALVESCO [Suspect]
     Active Substance: CICLESONIDE
     Indication: ASTHMA
     Dosage: AEROSOL, METERED DOSE
     Route: 065
  2. SYMBICORT [Suspect]
     Active Substance: BUDESONIDE\FORMOTEROL FUMARATE DIHYDRATE
     Route: 065
  3. SYMBICORT [Suspect]
     Active Substance: BUDESONIDE\FORMOTEROL FUMARATE DIHYDRATE
     Indication: PRODUCT USED FOR UNKNOWN INDICATION
     Dosage: POWDER
     Route: 065
  4. PREDNISONE. [Suspect]
     Active Substance: PREDNISONE
     Indication: ASTHMA
     Route: 065
  5. SALBUTAMOL SULFATE [Suspect]
     Active Substance: ALBUTEROL SULFATE
     Indication: ASTHMA
     Route: 065
  6. SPIRIVA [Suspect]
     Active Substance: TIOTROPIUM BROMIDE MONOHYDRATE
     Indication: ASTHMA
     Route: 065
  7. PANTOPRAZOLE SODIUM ANHYDROUS [Suspect]
     Active Substance: PANTOPRAZOLE SODIUM ANHYDROUS
     Indication: GASTROOESOPHAGEAL REFLUX DISEASE
     Route: 065
  8. SYMBICORT [Suspect]
     Active Substance: BUDESONIDE\FORMOTEROL FUMARATE DIHYDRATE
     Indication: ASTHMA
     Route: 065

REACTIONS (25)
  - Bronchiolitis [Recovered/Resolved]
  - Condition aggravated [Recovered/Resolved]
  - Blood count abnormal [Recovered/Resolved]
  - Therapeutic product effect incomplete [Recovered/Resolved]
  - Renal cyst [Recovered/Resolved]
  - Lymphadenopathy [Recovered/Resolved]
  - Bronchial secretion retention [Recovered/Resolved]
  - Bronchiectasis [Recovered/Resolved]
  - Nasal congestion [Recovered/Resolved]
  - Obstruction [Recovered/Resolved]
  - Productive cough [Recovered/Resolved]
  - Snoring [Recovered/Resolved]
  - Sputum discoloured [Recovered/Resolved]
  - Oxygen saturation decreased [Recovered/Resolved]
  - Lung consolidation [Recovered/Resolved]
  - Fatigue [Recovered/Resolved]
  - Hypoxia [Recovered/Resolved]
  - Vascular shunt [Recovered/Resolved]
  - Lung opacity [Recovered/Resolved]
  - Asthma [Recovered/Resolved]
  - Dyspnoea exertional [Recovered/Resolved]
  - Chest discomfort [Recovered/Resolved]
  - Sleep apnoea syndrome [Recovered/Resolved]
  - Eosinophil count increased [Recovered/Resolved]
  - Wheezing [Recovered/Resolved]
